FAERS Safety Report 4693045-8 (Version None)
Quarter: 2005Q2

REPORT INFORMATION
  Report Type: 
  Country: None (occurrence: None)
  Receive Date: 20050617
  Receipt Date: 20050524
  Transmission Date: 20051028
  Serious: Yes (Hospitalization)
  Sender: FDA-Public Use
  Company Number: PHHO2005JP08420

PATIENT
  Age: 76 Year
  Sex: Female
  Weight: 51 kg

DRUGS (4)
  1. DIOVAN [Suspect]
     Indication: HYPERTENSION
     Dosage: 80 MG, QD
     Route: 048
     Dates: start: 20030517, end: 20041129
  2. HUMACART-N [Concomitant]
     Indication: DIABETES MELLITUS INADEQUATE CONTROL
     Dates: start: 19970426
  3. KINEDAK [Concomitant]
     Indication: NERVE INJURY
     Dates: start: 19991122
  4. BAYASPIRIN [Concomitant]
     Indication: TRANSIENT ISCHAEMIC ATTACK
     Dates: start: 20010721

REACTIONS (4)
  - DIABETES MELLITUS [None]
  - HYPOAESTHESIA [None]
  - SPINAL OSTEOARTHRITIS [None]
  - SURGERY [None]
